FAERS Safety Report 11839405 (Version 1)
Quarter: 2015Q4

REPORT INFORMATION
  Report Type: Spontaneous
  Country: US (occurrence: None)
  Receive Date: 20151209
  Receipt Date: 20151209
  Transmission Date: 20160305
  Serious: Yes (Hospitalization)
  Sender: FDA-Public Use
  Company Number: AUR-APL-2015-06984

PATIENT
  Sex: Male

DRUGS (10)
  1. ASCORBIC ACID (ASCORBIC ACID) [Suspect]
     Active Substance: ASCORBIC ACID
     Indication: SUPPLEMENTATION THERAPY
     Route: 048
     Dates: start: 199501
  2. MAGNESIUM OXIDE (MAGNESIUM OXIDE) [Concomitant]
     Active Substance: MAGNESIUM OXIDE
     Indication: SUPPLEMENTATION THERAPY
     Dates: start: 201201
  3. FISH OIL [Concomitant]
     Active Substance: FISH OIL
  4. VITAMIN D3 [Suspect]
     Active Substance: CHOLECALCIFEROL
     Indication: SUPPLEMENTATION THERAPY
     Route: 048
     Dates: start: 201301
  5. MVI (VITAMINS NOS) [Concomitant]
  6. VASOTEC /00574902/ (ENALAPRIL MALEATE) [Concomitant]
     Indication: HYPERTENSION
     Route: 048
     Dates: start: 201405
  7. LEXAPRO [Suspect]
     Active Substance: ESCITALOPRAM OXALATE
     Indication: PRODUCT USED FOR UNKNOWN INDICATION
     Dates: start: 201401
  8. GLUCOSAMINE [Concomitant]
     Active Substance: GLUCOSAMINE
  9. ASPIRIN (ACETYLSALICYLIC ACID) [Concomitant]
     Active Substance: ASPIRIN
  10. TORASEMIDE 20MG (TORASEMIDE) UNKNOWN, 20MG [Suspect]
     Active Substance: TORSEMIDE
     Indication: CARDIOMYOPATHY
     Route: 048
     Dates: start: 201411

REACTIONS (1)
  - Atrial fibrillation [None]
